FAERS Safety Report 4816760-1 (Version None)
Quarter: 2005Q4

REPORT INFORMATION
  Report Type: 
  Country: None (occurrence: None)
  Receive Date: 20051028
  Receipt Date: 20051013
  Transmission Date: 20060501
  Serious: Yes (Disabling)
  Sender: FDA-Public Use
  Company Number: 200310791

PATIENT
  Age: 75 Year
  Sex: Female
  Weight: 80.7403 kg

DRUGS (15)
  1. BOTOX [Suspect]
     Indication: MUSCLE SPASMS
     Dosage: 400 UNITS PRN IM
     Route: 030
  2. BOTOX [Suspect]
     Indication: NEURALGIA
     Dosage: 400 UNITS PRN IM
     Route: 030
  3. BOTOX [Suspect]
     Indication: PAIN
     Dosage: 400 UNITS PRN IM
     Route: 030
  4. VITAMIN B-12 [Concomitant]
  5. SYNTHROID [Concomitant]
  6. TOPAMAX [Concomitant]
  7. CARDIZEM [Concomitant]
  8. XANAX [Concomitant]
  9. ZOLOFT [Concomitant]
  10. VITAMIN NOS [Concomitant]
  11. MAGNESIUM [Concomitant]
  12. TYLENOL (CAPLET) [Concomitant]
  13. TAVIST [Concomitant]
  14. ACIPHEX [Concomitant]
  15. PROVIGIL [Concomitant]

REACTIONS (62)
  - ABDOMINAL PAIN UPPER [None]
  - ACTIVITIES OF DAILY LIVING IMPAIRED [None]
  - ANXIETY [None]
  - ASTHENIA [None]
  - BACK PAIN [None]
  - BALANCE DISORDER [None]
  - BOTULISM [None]
  - BURNING SENSATION [None]
  - CARPAL TUNNEL SYNDROME [None]
  - CONDITION AGGRAVATED [None]
  - DEPRESSION [None]
  - DERMATITIS ALLERGIC [None]
  - DIPLOPIA [None]
  - DISEASE RECURRENCE [None]
  - DIZZINESS [None]
  - DIZZINESS POSTURAL [None]
  - DRUG HYPERSENSITIVITY [None]
  - DRUG TOXICITY [None]
  - DRY MOUTH [None]
  - DYSPHAGIA [None]
  - EATING DISORDER [None]
  - FATIGUE [None]
  - FEELING ABNORMAL [None]
  - FIBROMYALGIA [None]
  - GASTRIC DISORDER [None]
  - GASTROINTESTINAL DISORDER [None]
  - GLOSSODYNIA [None]
  - HEADACHE [None]
  - HIATUS HERNIA [None]
  - HYPOAESTHESIA [None]
  - HYPOTONIA [None]
  - INFECTION [None]
  - MOUTH ULCERATION [None]
  - MUSCLE ATROPHY [None]
  - MUSCLE TIGHTNESS [None]
  - MUSCULAR WEAKNESS [None]
  - MYOFASCIAL PAIN SYNDROME [None]
  - NECK PAIN [None]
  - NERVE INJURY [None]
  - NEUROPATHY PERIPHERAL [None]
  - OEDEMA MOUTH [None]
  - OEDEMA PERIPHERAL [None]
  - OESOPHAGEAL DISORDER [None]
  - ORAL SOFT TISSUE DISORDER [None]
  - OVERDOSE [None]
  - PAIN IN JAW [None]
  - PARAESTHESIA [None]
  - PARALYSIS [None]
  - PERIPHERAL SENSORY NEUROPATHY [None]
  - POLYNEUROPATHY [None]
  - RASH [None]
  - RESPIRATORY DISORDER [None]
  - SEDATION [None]
  - SENSATION OF HEAVINESS [None]
  - STOMATITIS [None]
  - STRESS [None]
  - SWELLING FACE [None]
  - SWOLLEN TONGUE [None]
  - THINKING ABNORMAL [None]
  - VEIN DISORDER [None]
  - VERTIGO POSITIONAL [None]
  - VISION BLURRED [None]
